FAERS Safety Report 16350396 (Version 1)
Quarter: 2019Q2

REPORT INFORMATION
  Report Type: Spontaneous
  Country: US (occurrence: US)
  Receive Date: 20190524
  Receipt Date: 20190524
  Transmission Date: 20190711
  Serious: Yes (Hospitalization, Other)
  Sender: FDA-Public Use
  Company Number: US-APOTEX-2019AP014773

PATIENT
  Age: 6 Year
  Sex: Male

DRUGS (1)
  1. MEGESTROL ACETATE. [Suspect]
     Active Substance: MEGESTROL ACETATE
     Indication: DECREASED APPETITE
     Dosage: UNK
     Route: 065

REACTIONS (3)
  - Intracranial pressure increased [Recovered/Resolved]
  - Steroid withdrawal syndrome [Unknown]
  - Adrenal insufficiency [Recovered/Resolved]
